FAERS Safety Report 8790663 (Version 1)
Quarter: 2012Q4

REPORT INFORMATION
  Report Type: Spontaneous
  Country: US (occurrence: None)
  Receive Date: 20120913
  Receipt Date: 20120913
  Transmission Date: 20130627
  Serious: No
  Sender: FDA-Public Use
  Company Number: None

PATIENT
  Age: 43 Year
  Sex: Female
  Weight: 53.98 kg

DRUGS (3)
  1. ADVAIR [Suspect]
     Indication: ASTHMA
     Dates: start: 20120906, end: 20120912
  2. ADVAIR [Suspect]
     Indication: ALLERGIC TO CATS
     Dates: start: 20120906, end: 20120912
  3. ADVAIR [Suspect]
     Indication: WHEEZING
     Dates: start: 20120906, end: 20120912

REACTIONS (2)
  - Vulvovaginal mycotic infection [None]
  - Arrhythmia [None]
